FAERS Safety Report 7709455-8 (Version None)
Quarter: 2011Q3

REPORT INFORMATION
  Report Type: 
  Country: None (occurrence: None)
  Receive Date: 20110825
  Receipt Date: 20110815
  Transmission Date: 20111222
  Serious: Yes (Other)
  Sender: FDA-Public Use
  Company Number: US-BAYER-2010-001592

PATIENT
  Age: 33 Year
  Sex: Female
  Weight: 125 kg

DRUGS (10)
  1. CIPROFLOXACIN [Concomitant]
     Dosage: 500 MG, BID
     Route: 048
     Dates: start: 20070306
  2. ZOLOFT [Concomitant]
  3. GLIPIZIDE [Concomitant]
  4. GLUCOPHAGE [Concomitant]
  5. LISINOPRIL [Concomitant]
  6. YASMIN [Suspect]
     Indication: ORAL CONTRACEPTION
     Dosage: UNK
     Dates: start: 20030401, end: 20070501
  7. METFORMIN HCL [Concomitant]
     Indication: DIABETES MELLITUS
     Dosage: 500 MG, BID
     Route: 048
     Dates: start: 20070306
  8. SERTRALINE HYDROCHLORIDE [Concomitant]
     Dosage: 50 MG, UNK
     Route: 048
     Dates: start: 20070423
  9. FLEXERIL [Concomitant]
  10. NORVASC [Concomitant]

REACTIONS (1)
  - THROMBOSIS [None]
